FAERS Safety Report 9371722 (Version 1)
Quarter: 2013Q2

REPORT INFORMATION
  Report Type: Report from Study
  Country: US (occurrence: US)
  Receive Date: 20130627
  Receipt Date: 20130627
  Transmission Date: 20140414
  Serious: Yes (Other)
  Sender: FDA-Public Use
  Company Number: US-MYLANLABS-2012S1019713

PATIENT
  Age: 23 Year
  Sex: Female

DRUGS (6)
  1. CLOZAPINE TABLETS [Suspect]
     Indication: PSYCHOTIC DISORDER
     Route: 048
     Dates: start: 20120818, end: 20120919
  2. CLOZAPINE TABLETS [Suspect]
     Indication: SCHIZOAFFECTIVE DISORDER
     Route: 048
     Dates: start: 20120818, end: 20120919
  3. ALLOPURINOL [Concomitant]
  4. PROZAC [Concomitant]
     Route: 048
  5. DEPAKOTE [Concomitant]
  6. ZANTAC [Concomitant]

REACTIONS (1)
  - Granulocytopenia [Recovered/Resolved]
